FAERS Safety Report 7029639-4 (Version None)
Quarter: 2010Q4

REPORT INFORMATION
  Report Type: 
  Country: None (occurrence: None)
  Receive Date: 20101005
  Receipt Date: 20101004
  Transmission Date: 20110411
  Serious: Yes (Hospitalization)
  Sender: FDA-Public Use
  Company Number: DE-MERCK-1010DEU00018

PATIENT
  Age: 78 Year
  Sex: Male

DRUGS (2)
  1. SINEMET [Suspect]
     Indication: PARKINSON'S DISEASE
     Route: 048
     Dates: start: 20090429, end: 20091220
  2. SINEMET [Suspect]
     Route: 048
     Dates: start: 20091221, end: 20101001

REACTIONS (3)
  - MALIGNANT MELANOMA [None]
  - METASTASES TO LUNG [None]
  - METASTASES TO LYMPH NODES [None]
